FAERS Safety Report 4574590-2 (Version None)
Quarter: 2005Q1

REPORT INFORMATION
  Report Type: 
  Country: None (occurrence: None)
  Receive Date: 20050204
  Receipt Date: 20050201
  Transmission Date: 20050727
  Serious: Yes (Death)
  Sender: FDA-Public Use
  Company Number: KII-2002-0002178

PATIENT
  Sex: Female

DRUGS (1)
  1. OXYCONTIN [Suspect]
     Indication: CANCER PAIN

REACTIONS (3)
  - DRUG EFFECT DECREASED [None]
  - GASTRIC CANCER [None]
  - VOMITING [None]
